FAERS Safety Report 22161558 (Version 1)
Quarter: 2023Q1

REPORT INFORMATION
  Report Type: Spontaneous
  Country: US (occurrence: US)
  Receive Date: 20230331
  Receipt Date: 20230331
  Transmission Date: 20230418
  Serious: No
  Sender: FDA-Public Use
  Company Number: US-Ipsen Biopharmaceuticals, Inc.-2023-07659

PATIENT
  Age: 83 Year
  Sex: Female
  Weight: 63 kg

DRUGS (4)
  1. DYSPORT [Suspect]
     Active Substance: ABOBOTULINUMTOXINA
     Indication: Skin wrinkling
     Dosage: GLABELLAR LINES: 10 UNITS INTO 5 INJECTION POINTS EACH, 50UNITS, 50 UNITS (2ND TIME)?CANTHAL LINES:
     Route: 030
     Dates: start: 20230223, end: 20230309
  2. DYSPORT [Suspect]
     Active Substance: ABOBOTULINUMTOXINA
     Indication: Skin wrinkling
     Dosage: GLABELLAR LINES: 10 UNITS INTO 5 INJECTION POINTS EACH, 50UNITS, 50 UNITS (2ND TIME)?CANTHAL LINES:
     Route: 030
     Dates: start: 20230105, end: 20230223
  3. DYSPORT [Suspect]
     Active Substance: ABOBOTULINUMTOXINA
     Indication: Off label use
  4. DYSPORT [Suspect]
     Active Substance: ABOBOTULINUMTOXINA
     Indication: Off label use

REACTIONS (1)
  - Drug ineffective [Unknown]

NARRATIVE: CASE EVENT DATE: 20230223
